FAERS Safety Report 11238179 (Version 1)
Quarter: 2015Q3

REPORT INFORMATION
  Report Type: Report from Study
  Country: FR (occurrence: FR)
  Receive Date: 20150703
  Receipt Date: 20150703
  Transmission Date: 20151125
  Serious: Yes (Hospitalization, Other)
  Sender: FDA-Public Use
  Company Number: FR-GLAXOSMITHKLINE-FR2015GSK093875

PATIENT
  Age: 73 Year
  Sex: Male

DRUGS (6)
  1. OMEGA-3-ACID ETHYL ESTERS. [Suspect]
     Active Substance: OMEGA-3-ACID ETHYL ESTERS
     Indication: ISCHAEMIC HEART DISEASE PROPHYLAXIS
     Dosage: UNK
     Dates: start: 20070410, end: 20100412
  2. COVERSYL [Concomitant]
     Active Substance: PERINDOPRIL
  3. CARDENSIEL [Concomitant]
     Active Substance: BISOPROLOL FUMARATE
  4. TAHOR [Concomitant]
     Active Substance: ATORVASTATIN CALCIUM
  5. ALDACTONE [Concomitant]
     Active Substance: SPIRONOLACTONE
  6. PLAVIX [Concomitant]
     Active Substance: CLOPIDOGREL BISULFATE

REACTIONS (1)
  - Angina unstable [Unknown]

NARRATIVE: CASE EVENT DATE: 20070703
